FAERS Safety Report 7323686-0 (Version None)
Quarter: 2011Q1

REPORT INFORMATION
  Report Type: 
  Country: None (occurrence: None)
  Receive Date: 20110301
  Receipt Date: 20100909
  Transmission Date: 20110831
  Serious: Yes (Hospitalization, Other)
  Sender: FDA-Public Use
  Company Number: US-BAYER-200938208NA

PATIENT
  Sex: Female
  Weight: 92 kg

DRUGS (4)
  1. NAPROXEN [Concomitant]
  2. HYDROCHLOROTHIAZIDE [Concomitant]
  3. YASMIN [Suspect]
     Indication: CONTRACEPTION
  4. YAZ [Suspect]
     Indication: PREMENSTRUAL SYNDROME
     Dosage: UNK
     Dates: start: 20070401, end: 20081101

REACTIONS (8)
  - CHOLESTEROSIS [None]
  - CHOLECYSTITIS CHRONIC [None]
  - NAUSEA [None]
  - VOMITING [None]
  - DEEP VEIN THROMBOSIS [None]
  - CHOLELITHIASIS [None]
  - PANCREATITIS [None]
  - ABDOMINAL PAIN [None]
